FAERS Safety Report 4450813-5 (Version None)
Quarter: 2004Q3

REPORT INFORMATION
  Report Type: 
  Country: None (occurrence: None)
  Receive Date: 20040916
  Receipt Date: 20011002
  Transmission Date: 20050211
  Serious: Yes (Other)
  Sender: FDA-Public Use
  Company Number: US-BRISTOL-MYERS SQUIBB COMPANY-11013133

PATIENT
  Age: 51 Year
  Sex: Female

DRUGS (21)
  1. STADOL [Suspect]
     Route: 045
  2. STADOL [Suspect]
  3. PIROXICAM [Concomitant]
  4. PREMARIN [Concomitant]
  5. LEVOTHYROXINE SODIUM [Concomitant]
  6. PROPOXYPHENE NAPSYLATE + ASA [Concomitant]
     Dosage: DOSING: 100-650 TABLETS
  7. NAPROXEN SODIUM [Concomitant]
  8. ZOLOFT [Concomitant]
  9. CYCLOBENZAPRINE HCL [Concomitant]
  10. PREVACID [Concomitant]
  11. DARVOCET-N 50 [Concomitant]
  12. DIAZEPAM [Concomitant]
  13. ACETAMINOPHEN [Concomitant]
     Dosage: DOSING: 160MG/5ML
  14. OXYCODONE HCL + ACETAMINOPHEN [Concomitant]
     Dosage: DOSING: 5/500 CAP
  15. CLONAZEPAM [Concomitant]
  16. RANITIDINE [Concomitant]
  17. LEVOXYL [Concomitant]
  18. AMITRIPTYLINE HCL [Concomitant]
  19. TRAZODONE HCL [Concomitant]
  20. PROZAC [Concomitant]
  21. ULTRAM [Concomitant]

REACTIONS (1)
  - DRUG DEPENDENCE [None]
